FAERS Safety Report 7912485-4 (Version None)
Quarter: 2011Q4

REPORT INFORMATION
  Report Type: 
  Country: None (occurrence: None)
  Receive Date: 20111114
  Receipt Date: 20111112
  Transmission Date: 20120403
  Serious: No
  Sender: FDA-Public Use
  Company Number: US-PFIZER INC-2011277668

PATIENT
  Sex: Female
  Weight: 63.492 kg

DRUGS (2)
  1. CHANTIX [Suspect]
     Indication: SMOKING CESSATION THERAPY
     Dosage: 0.5 MG, DAILY
     Route: 048
     Dates: start: 20111101, end: 20111112
  2. LORTAB [Concomitant]
     Dosage: 10MG/500MG, 3X/DAY
     Route: 048

REACTIONS (2)
  - NAUSEA [None]
  - MALAISE [None]
